FAERS Safety Report 18230120 (Version 1)
Quarter: 2020Q3

REPORT INFORMATION
  Report Type: Spontaneous
  Country: US (occurrence: US)
  Receive Date: 20200903
  Receipt Date: 20200903
  Transmission Date: 20201103
  Serious: No
  Sender: FDA-Public Use
  Company Number: US-TEVA-2020-US-1822551

PATIENT
  Age: 55 Year
  Sex: Female

DRUGS (4)
  1. NORTRIPTYLINE HYDROCHLORIDE. [Suspect]
     Active Substance: NORTRIPTYLINE HYDROCHLORIDE
     Indication: BRACHIORADIAL PRURITUS
     Route: 065
     Dates: start: 20200816
  2. ALLEGRA [Concomitant]
     Active Substance: FEXOFENADINE HYDROCHLORIDE
  3. CYTOMEL [Concomitant]
     Active Substance: LIOTHYRONINE SODIUM
  4. ARMOUR THYROID [Concomitant]
     Active Substance: THYROID, PORCINE

REACTIONS (9)
  - Nightmare [Unknown]
  - Dyspepsia [Recovering/Resolving]
  - Flatulence [Recovering/Resolving]
  - Energy increased [Unknown]
  - Abdominal distension [Recovering/Resolving]
  - Insomnia [Unknown]
  - Product dose omission issue [Unknown]
  - Neuralgia [Recovered/Resolved]
  - Pruritus [Recovered/Resolved]

NARRATIVE: CASE EVENT DATE: 202008
